FAERS Safety Report 23391331 (Version 4)
Quarter: 2024Q1

REPORT INFORMATION
  Report Type: Spontaneous
  Country: FR (occurrence: FR)
  Receive Date: 20240111
  Receipt Date: 20240229
  Transmission Date: 20240410
  Serious: Yes (Disabling, Other)
  Sender: FDA-Public Use
  Company Number: FR-002147023-NVSC2024FR005207

PATIENT
  Sex: Male
  Weight: 2.4 kg

DRUGS (2)
  1. TEGRETOL [Suspect]
     Active Substance: CARBAMAZEPINE
     Indication: Product used for unknown indication
     Dosage: 200 MG
     Route: 065
  2. VALPROATE SODIUM [Concomitant]
     Active Substance: VALPROATE SODIUM
     Indication: Epilepsy
     Dosage: UNK
     Route: 065

REACTIONS (12)
  - Seizure [Unknown]
  - Cognitive disorder [Unknown]
  - Depression [Unknown]
  - Teratogenicity [Unknown]
  - Foetal exposure during pregnancy [Unknown]
  - Coordination abnormal [Unknown]
  - Attention deficit hyperactivity disorder [Unknown]
  - Neurodevelopmental delay [Unknown]
  - Fine motor skill dysfunction [Unknown]
  - Anxiety [Unknown]
  - Drug ineffective [Unknown]
  - Normal newborn [Unknown]

NARRATIVE: CASE EVENT DATE: 19980101
